FAERS Safety Report 5852540-6 (Version None)
Quarter: 2008Q3

REPORT INFORMATION
  Report Type: 
  Country: None (occurrence: None)
  Receive Date: 20080821
  Receipt Date: 20080805
  Transmission Date: 20090109
  Serious: Yes (Disabling)
  Sender: FDA-Public Use
  Company Number: DE-EISAI MEDIAL RESEARCH-E3810-02059-SPO-DE

PATIENT
  Sex: Male

DRUGS (3)
  1. RABEPRAZOLE SODIUM [Suspect]
     Indication: BARRETT'S OESOPHAGUS
     Dosage: UNKNOWN
     Route: 048
     Dates: start: 20060901
  2. URSECHOL [Concomitant]
     Indication: GASTROOESOPHAGEAL REFLUX DISEASE
     Dates: start: 20080211
  3. MAALOX [Concomitant]
     Indication: REFLUX OESOPHAGITIS
     Dates: start: 20080603

REACTIONS (2)
  - ANOSMIA [None]
  - HYPOGEUSIA [None]
